FAERS Safety Report 6199620-6 (Version None)
Quarter: 2009Q2

REPORT INFORMATION
  Report Type: 
  Country: None (occurrence: None)
  Receive Date: 20090522
  Receipt Date: 20080602
  Transmission Date: 20091009
  Serious: No
  Sender: FDA-Public Use
  Company Number: A0732084A

PATIENT
  Age: 49 Year
  Sex: Female

DRUGS (3)
  1. BACTROBAN [Suspect]
     Route: 061
     Dates: start: 20080526, end: 20080527
  2. METHYLPREDNISOLONE ACETATE [Concomitant]
  3. HYDROXINE [Concomitant]

REACTIONS (6)
  - BLISTER [None]
  - ERYTHEMA [None]
  - INFLAMMATION [None]
  - OEDEMA PERIPHERAL [None]
  - PRURITUS [None]
  - SKIN DISORDER [None]
